FAERS Safety Report 4300927-5 (Version None)
Quarter: 2004Q1

REPORT INFORMATION
  Report Type: 
  Country: None (occurrence: None)
  Receive Date: 20040219
  Receipt Date: 20040210
  Transmission Date: 20041129
  Serious: Yes (Life-Threatening, Hospitalization)
  Sender: FDA-Public Use
  Company Number: 200410082BCA

PATIENT
  Age: 67 Year
  Sex: Female

DRUGS (6)
  1. CIPRO [Suspect]
     Indication: URINARY TRACT INFECTION
     Dosage: 500 MG, BID, ORAL
     Route: 048
  2. FUROSEMIDE [Concomitant]
  3. LISINOPRIL [Concomitant]
  4. AMIODARONE [Concomitant]
  5. DIGOXIN [Concomitant]
  6. WARFARIN [Concomitant]

REACTIONS (4)
  - BLOOD POTASSIUM DECREASED [None]
  - ELECTROCARDIOGRAM QT CORRECTED INTERVAL PROLONGED [None]
  - TORSADE DE POINTES [None]
  - VENTRICULAR EXTRASYSTOLES [None]
